FAERS Safety Report 9678308 (Version 2)
Quarter: 2013Q4

REPORT INFORMATION
  Report Type: Spontaneous
  Country: BR (occurrence: BR)
  Receive Date: 20131108
  Receipt Date: 20131108
  Transmission Date: 20140711
  Serious: Yes (Other)
  Sender: FDA-Public Use
  Company Number: BR-PFIZER INC-2013195371

PATIENT
  Age: 59 Year
  Sex: Male
  Weight: 79 kg

DRUGS (14)
  1. SUTENT [Suspect]
     Indication: RENAL CELL CARCINOMA
     Dosage: 37.5 MG (25 MG + 12.5 MG), CYCLIC (3 X 1)
     Route: 048
     Dates: start: 20130530
  2. SUTENT [Suspect]
     Dosage: UNK
  3. SUTENT [Suspect]
     Dosage: UNK
  4. LOSARTAN [Concomitant]
     Dosage: UNK
  5. CLONAZEPAM [Concomitant]
     Dosage: STRENGTH 0.25MG
  6. OMEPRAZOLE [Concomitant]
     Dosage: STRENGTH 20MG
  7. PURAN T4 [Concomitant]
  8. ATORVASTATIN [Concomitant]
  9. NORTRIPTYLINE [Concomitant]
     Dosage: STRENGTH 25MG
  10. CONCOR [Concomitant]
     Dosage: STRENGTH 2.5MG
  11. SIMVASTATIN [Concomitant]
     Dosage: STRENGTH 20 MG
  12. AMLODIPINE [Concomitant]
     Dosage: STRENGTH 5MG
  13. LEVOTHYROXINE [Concomitant]
     Dosage: STRENGTH 100MG
  14. LOSARTAN POTASSIUM [Concomitant]
     Dosage: STRENGTH 100MG

REACTIONS (12)
  - Haemorrhage [Unknown]
  - Nail discolouration [Not Recovered/Not Resolved]
  - Painful defaecation [Unknown]
  - Dysuria [Not Recovered/Not Resolved]
  - Penile swelling [Not Recovered/Not Resolved]
  - Penis disorder [Not Recovered/Not Resolved]
  - Thermal burn [Not Recovered/Not Resolved]
  - Fatigue [Not Recovered/Not Resolved]
  - Yellow skin [Unknown]
  - Swelling face [Not Recovered/Not Resolved]
  - Skin sensitisation [Not Recovered/Not Resolved]
  - Bone pain [Not Recovered/Not Resolved]
